FAERS Safety Report 21348009 (Version 1)
Quarter: 2022Q3

REPORT INFORMATION
  Report Type: Spontaneous
  Country: FR (occurrence: FR)
  Receive Date: 20220919
  Receipt Date: 20220919
  Transmission Date: 20221027
  Serious: Yes (Other)
  Sender: FDA-Public Use
  Company Number: None

PATIENT
  Age: 54 Year
  Sex: Male
  Weight: 58 kg

DRUGS (2)
  1. RIFAMPIN [Suspect]
     Active Substance: RIFAMPIN
     Indication: Osteomyelitis
     Dosage: 900 MG, TID
     Route: 048
     Dates: start: 20220630, end: 20220902
  2. OFLOXACIN [Concomitant]
     Active Substance: OFLOXACIN
     Indication: Osteomyelitis
     Dosage: 200 MG, TID
     Route: 048
     Dates: start: 20220630

REACTIONS (3)
  - Lipase increased [Recovering/Resolving]
  - Prescribed overdose [Recovered/Resolved]
  - Alanine aminotransferase increased [Not Recovered/Not Resolved]

NARRATIVE: CASE EVENT DATE: 20220630
